FAERS Safety Report 6848063-8 (Version None)
Quarter: 2010Q3

REPORT INFORMATION
  Report Type: 
  Country: None (occurrence: None)
  Receive Date: 20100714
  Receipt Date: 20100702
  Transmission Date: 20110219
  Serious: Yes (Hospitalization)
  Sender: FDA-Public Use
  Company Number: IPC201007-000180

PATIENT
  Age: 73 Year
  Sex: Male

DRUGS (3)
  1. HYDROCHLOROTHIAZIDE [Suspect]
     Indication: HYPERTENSION
     Dosage: 50 MG PER DAY
  2. LISINOPRIL [Suspect]
     Indication: HYPERTENSION
  3. ALPHACALCIDOL [Suspect]
     Indication: PARATHYROIDECTOMY

REACTIONS (12)
  - AORTIC CALCIFICATION [None]
  - BLOOD CREATINE INCREASED [None]
  - BLOOD PRESSURE INCREASED [None]
  - DYSSTASIA [None]
  - HYPERCALCAEMIA [None]
  - HYPOKALAEMIA [None]
  - HYPOVOLAEMIA [None]
  - METABOLIC ALKALOSIS [None]
  - MUSCULAR WEAKNESS [None]
  - NEPHROLITHIASIS [None]
  - RENAL DISORDER [None]
  - VITAMIN D INCREASED [None]
